FAERS Safety Report 19915508 (Version 1)
Quarter: 2021Q4

REPORT INFORMATION
  Report Type: Spontaneous
  Country: US (occurrence: US)
  Receive Date: 20211004
  Receipt Date: 20211004
  Transmission Date: 20220304
  Serious: Yes (Other)
  Sender: FDA-Public Use
  Company Number: US-OTSUKA-2020_030210

PATIENT
  Sex: Female

DRUGS (4)
  1. ABILIFY [Suspect]
     Active Substance: ARIPIPRAZOLE
     Indication: Product used for unknown indication
     Dosage: 20 MG, QD
     Route: 065
  2. ARIPIPRAZOLE [Suspect]
     Active Substance: ARIPIPRAZOLE
     Indication: Product used for unknown indication
     Dosage: 4 MG, QD
     Route: 065
     Dates: start: 2020, end: 20201128
  3. ARIPIPRAZOLE [Suspect]
     Active Substance: ARIPIPRAZOLE
     Dosage: 2 MG, QD
     Route: 065
     Dates: start: 2020, end: 20201128
  4. NICOTINE [Suspect]
     Active Substance: NICOTINE
     Indication: Product used for unknown indication
     Dosage: UNK
     Route: 065

REACTIONS (19)
  - Anaphylactic reaction [Unknown]
  - Temperature intolerance [Unknown]
  - Feeling hot [Unknown]
  - Heavy menstrual bleeding [Unknown]
  - Drug hypersensitivity [Unknown]
  - Muscle tightness [Unknown]
  - Arthralgia [Unknown]
  - Memory impairment [Recovered/Resolved]
  - Memory impairment [Not Recovered/Not Resolved]
  - Polyuria [Unknown]
  - Photosensitivity reaction [Unknown]
  - Nausea [Unknown]
  - Restlessness [Unknown]
  - Constipation [Unknown]
  - Compulsive shopping [Unknown]
  - Anxiety [Unknown]
  - Musculoskeletal stiffness [Recovering/Resolving]
  - Rash [Recovering/Resolving]
  - Tobacco abuse [Unknown]

NARRATIVE: CASE EVENT DATE: 20200101
